FAERS Safety Report 15793931 (Version 1)
Quarter: 2019Q1

REPORT INFORMATION
  Report Type: Spontaneous
  Country: US (occurrence: US)
  Receive Date: 20190105
  Receipt Date: 20190105
  Transmission Date: 20190417
  Serious: Yes (Life-Threatening)
  Sender: FDA-Public Use
  Company Number: None

PATIENT
  Age: 44 Year
  Sex: Female
  Weight: 82.8 kg

DRUGS (8)
  1. METAMUCIL [Concomitant]
     Active Substance: PLANTAGO SEED
  2. PROBIOTIC [Concomitant]
     Active Substance: PROBIOTICS NOS
  3. STOOL SOFTENER (DOCUSATE SODIUM) [Concomitant]
     Active Substance: DOCUSATE SODIUM
  4. TYLENOL [Concomitant]
     Active Substance: ACETAMINOPHEN
  5. SAXENDA [Concomitant]
     Active Substance: LIRAGLUTIDE
  6. BUDESONIDE 3 MG CAPSULES [Suspect]
     Active Substance: BUDESONIDE
     Indication: CROHN^S DISEASE
     Dosage: ?          QUANTITY:90 CAPSULE(S);?
     Route: 048
     Dates: start: 20190102, end: 20190104
  7. PHENTERMINE. [Concomitant]
     Active Substance: PHENTERMINE
  8. BIOTIN [Concomitant]
     Active Substance: BIOTIN

REACTIONS (4)
  - Oral mucosal blistering [None]
  - Pruritus [None]
  - Petechiae [None]
  - Swollen tongue [None]

NARRATIVE: CASE EVENT DATE: 20190103
